FAERS Safety Report 10873659 (Version 1)
Quarter: 2015Q1

REPORT INFORMATION
  Report Type: Spontaneous
  Country: DE (occurrence: DE)
  Receive Date: 20150227
  Receipt Date: 20150227
  Transmission Date: 20150721
  Serious: Yes (Other)
  Sender: FDA-Public Use
  Company Number: DE-BAYER-2014-126869

PATIENT
  Age: 37 Year
  Sex: Female
  Weight: 65 kg

DRUGS (2)
  1. MIRENA [Suspect]
     Active Substance: LEVONORGESTREL
     Indication: CONTRACEPTION
     Dosage: 20 MCG/24HR, CONT
     Route: 015
     Dates: start: 20100125
  2. MIRENA [Suspect]
     Active Substance: LEVONORGESTREL
     Indication: CONTRACEPTION
     Dosage: 20 MCG/24HR, CONT
     Route: 015
     Dates: end: 20100125

REACTIONS (7)
  - Pregnancy with contraceptive device [Recovered/Resolved]
  - Herpes gestationis [None]
  - Foetal malpresentation [Recovered/Resolved]
  - Off label use [None]
  - Drug ineffective [None]
  - Premature delivery [None]
  - Amenorrhoea [None]

NARRATIVE: CASE EVENT DATE: 20140527
